FAERS Safety Report 6791657-9 (Version None)
Quarter: 2010Q2

REPORT INFORMATION
  Report Type: 
  Country: None (occurrence: None)
  Receive Date: 20100624
  Receipt Date: 20090713
  Transmission Date: 20101027
  Serious: Yes (Other)
  Sender: FDA-Public Use
  Company Number: US-PFIZER INC-2008058379

PATIENT
  Sex: Female

DRUGS (6)
  1. PROVERA [Suspect]
     Indication: HORMONE REPLACEMENT THERAPY
     Dosage: UNK
     Route: 048
     Dates: start: 19900101, end: 20010101
  2. PREMARIN [Suspect]
     Indication: HORMONE REPLACEMENT THERAPY
     Dosage: UNK
     Dates: start: 19900101, end: 20010101
  3. ACETYLSALICYLIC ACID [Concomitant]
     Indication: THROMBOSIS
     Dosage: UNK
     Dates: start: 19990101
  4. QUINAPRIL [Concomitant]
     Dosage: UNK
     Dates: start: 19990101
  5. HYDROCHLOROTHIAZIDE [Concomitant]
     Indication: BLOOD PRESSURE
     Dosage: UNK
     Dates: start: 19990101
  6. LIPITOR [Concomitant]
     Indication: BLOOD CHOLESTEROL
     Dosage: UNK
     Dates: start: 19990101, end: 20070101

REACTIONS (1)
  - BREAST CANCER [None]
